FAERS Safety Report 18664324 (Version 1)
Quarter: 2020Q4

REPORT INFORMATION
  Report Type: Report from Study
  Country: US (occurrence: US)
  Receive Date: 20201225
  Receipt Date: 20201225
  Transmission Date: 20210114
  Serious: No
  Sender: FDA-Public Use
  Company Number: NVSC2020US334114

PATIENT
  Age: 55 Year
  Sex: Male

DRUGS (3)
  1. POTASSIUM [Concomitant]
     Active Substance: POTASSIUM
     Dosage: 0.5 DF, QD
     Route: 065
     Dates: start: 202009
  2. POTASSIUM [Concomitant]
     Active Substance: POTASSIUM
     Indication: PRODUCT USED FOR UNKNOWN INDICATION
     Dosage: 1 DF, QD
     Route: 065
  3. ENTRESTO [Suspect]
     Active Substance: SACUBITRIL\VALSARTAN
     Indication: PRODUCT USED FOR UNKNOWN INDICATION
     Dosage: UNK UNK, UNKNOWN
     Route: 048
     Dates: start: 20200914

REACTIONS (1)
  - Fluid retention [Recovering/Resolving]

NARRATIVE: CASE EVENT DATE: 202012
